FAERS Safety Report 8046239-8 (Version None)
Quarter: 2012Q1

REPORT INFORMATION
  Report Type: 
  Country: None (occurrence: None)
  Receive Date: 20120113
  Receipt Date: 20120110
  Transmission Date: 20120608
  Serious: Yes (Other)
  Sender: FDA-Public Use
  Company Number: US-PFIZER INC-US-WYE-H15981110

PATIENT
  Sex: Female
  Weight: 72.6 kg

DRUGS (6)
  1. PREMARIN [Suspect]
     Dosage: UNK
  2. PREMARIN [Suspect]
     Indication: MENOPAUSAL SYMPTOMS
     Dosage: 0.625 MG, DAILY
     Route: 048
     Dates: start: 19971001, end: 20020101
  3. DIAZEPAM [Concomitant]
     Indication: MUSCLE DISORDER
     Dosage: 5 MG, AS NEEDED
  4. PRILOSEC [Concomitant]
     Indication: GASTROOESOPHAGEAL REFLUX DISEASE
     Dosage: 20 MG, AS NEEDED
  5. ACETYLSALICYLIC ACID [Concomitant]
     Indication: PAIN
     Dosage: 325 MG, AS NEEDED
  6. PREMARIN [Suspect]
     Dosage: 0.3 MG, UNK
     Route: 048
     Dates: start: 20020101

REACTIONS (6)
  - AMNESIA [None]
  - DISTURBANCE IN ATTENTION [None]
  - MEMORY IMPAIRMENT [None]
  - CONFUSIONAL STATE [None]
  - ANXIETY [None]
  - HOT FLUSH [None]
